FAERS Safety Report 5946823-9 (Version None)
Quarter: 2008Q4

REPORT INFORMATION
  Report Type: 
  Country: None (occurrence: None)
  Receive Date: 20081107
  Receipt Date: 20081107
  Transmission Date: 20090506
  Serious: Yes (Other)
  Sender: FDA-Public Use
  Company Number: None

PATIENT
  Age: 35 Year
  Sex: Female
  Weight: 63.5036 kg

DRUGS (1)
  1. FE TABS 325 FERROUS SULFATE IRON TABLETS 325 MPG WINDMILL HEALTH PRODU [Suspect]
     Indication: ANAEMIA
     Dosage: 325 MG 2 TABLET DAILY PO
     Route: 048
     Dates: start: 20051020, end: 20060405

REACTIONS (2)
  - MUSCLE SPASMS [None]
  - MUSCULOSKELETAL STIFFNESS [None]
